FAERS Safety Report 8998367 (Version 1)
Quarter: 2013Q1

REPORT INFORMATION
  Report Type: Spontaneous
  Country: US (occurrence: US)
  Receive Date: 20130105
  Receipt Date: 20130105
  Transmission Date: 20140127
  Serious: No
  Sender: FDA-Public Use
  Company Number: US-JNJFOC-20121204973

PATIENT
  Age: 30 Year
  Sex: Female

DRUGS (3)
  1. INVEGA SUSTENNA [Suspect]
     Indication: PRODUCT USED FOR UNKNOWN INDICATION
     Route: 030
  2. DEPAKOTE [Concomitant]
     Route: 048
  3. AN UNKNOWN MEDICATION [Concomitant]
     Indication: CONVULSION
     Route: 065

REACTIONS (1)
  - Rash [Recovered/Resolved]
